FAERS Safety Report 5492028-8 (Version None)
Quarter: 2007Q4

REPORT INFORMATION
  Report Type: 
  Country: None (occurrence: None)
  Receive Date: 20071018
  Receipt Date: 20071018
  Transmission Date: 20080405
  Serious: Yes (Hospitalization)
  Sender: FDA-Public Use
  Company Number: None

PATIENT
  Sex: Female
  Weight: 95.9 kg

DRUGS (10)
  1. TEMOZOLOMIDE [Suspect]
     Dosage: 3360 MG
     Dates: end: 20070917
  2. AMBIEN [Concomitant]
  3. CLIDAMYCIN HCL [Concomitant]
  4. DECADRON [Concomitant]
  5. DIFLUCAN [Concomitant]
  6. HYCODAN [Concomitant]
  7. TAXOTERE [Concomitant]
  8. TUSSIONEX [Concomitant]
  9. XANAX [Concomitant]
  10. ZOFRAN [Concomitant]

REACTIONS (7)
  - ACUTE PRERENAL FAILURE [None]
  - CLOSTRIDIUM DIFFICILE COLITIS [None]
  - HYPOTENSION [None]
  - ORAL INTAKE REDUCED [None]
  - RENAL TUBULAR NECROSIS [None]
  - SEPSIS [None]
  - URINARY TRACT INFECTION [None]
